FAERS Safety Report 6017438-1 (Version None)
Quarter: 2008Q4

REPORT INFORMATION
  Report Type: 
  Country: None (occurrence: None)
  Receive Date: 20081219
  Receipt Date: 20081204
  Transmission Date: 20090506
  Serious: Yes (Other)
  Sender: FDA-Public Use
  Company Number: 2008S1008219

PATIENT
  Sex: Female

DRUGS (3)
  1. AZATHIOPRINE [Suspect]
     Indication: DRUG USE FOR UNKNOWN INDICATION
     Dosage: 150 MG; DAILY
     Dates: start: 20080401
  2. CARBIMAZOLE (CARBIMAZOLE) [Concomitant]
  3. PREDNISOLONE [Concomitant]

REACTIONS (3)
  - RED BLOOD CELL MORPHOLOGY ABNORMAL [None]
  - SPLEEN DISORDER [None]
  - SPUR CELL ANAEMIA [None]
